FAERS Safety Report 16577184 (Version 1)
Quarter: 2019Q3

REPORT INFORMATION
  Report Type: Spontaneous
  Country: GB (occurrence: GB)
  Receive Date: 20190716
  Receipt Date: 20190716
  Transmission Date: 20191004
  Serious: Yes (Life-Threatening, Hospitalization, Other)
  Sender: FDA-Public Use
  Company Number: GB-HIKMA PHARMACEUTICALS USA INC.-GB-H14001-19-46008

PATIENT
  Age: 10 Year
  Sex: Female

DRUGS (5)
  1. ALEMTUZUMAB [Suspect]
     Active Substance: ALEMTUZUMAB
     Indication: HAEMOPHAGOCYTIC LYMPHOHISTIOCYTOSIS
     Route: 065
  2. ETOPOSIDE. [Suspect]
     Active Substance: ETOPOSIDE
     Indication: HAEMOPHAGOCYTIC LYMPHOHISTIOCYTOSIS
     Route: 065
  3. DEXAMETHASONE. [Suspect]
     Active Substance: DEXAMETHASONE
     Indication: HAEMOPHAGOCYTIC LYMPHOHISTIOCYTOSIS
     Route: 065
  4. ACICLOVIR [Suspect]
     Active Substance: ACYCLOVIR
     Indication: HERPES SIMPLEX
     Route: 065
  5. CICLOSPORIN [Suspect]
     Active Substance: CYCLOSPORINE
     Indication: HAEMOPHAGOCYTIC LYMPHOHISTIOCYTOSIS
     Route: 065

REACTIONS (3)
  - Drug ineffective [Recovered/Resolved]
  - Nervous system disorder [Not Recovered/Not Resolved]
  - Multiple organ dysfunction syndrome [Not Recovered/Not Resolved]
